FAERS Safety Report 11583658 (Version 1)
Quarter: 2015Q4

REPORT INFORMATION
  Report Type: Spontaneous
  Country: GB (occurrence: GB)
  Receive Date: 20151001
  Receipt Date: 20151001
  Transmission Date: 20160304
  Serious: Yes (Life-Threatening)
  Sender: FDA-Public Use
  Company Number: GB-WATSON-2015-20747

PATIENT
  Age: 25 Year
  Sex: Male
  Weight: 64 kg

DRUGS (3)
  1. DICLOFENAC-MISOPROSTOL (UNKNOWN) [Suspect]
     Active Substance: DICLOFENAC SODIUM\MISOPROSTOL
     Indication: GASTROOESOPHAGEAL REFLUX DISEASE
     Dosage: 2 DF, DAILY
     Route: 048
     Dates: start: 20150909, end: 20150911
  2. OMEPRAZOL                          /00661201/ [Concomitant]
     Active Substance: OMEPRAZOLE
     Indication: PRODUCT USED FOR UNKNOWN INDICATION
     Dosage: 40 MG, UNK
     Route: 065
  3. DIMENHYDRINAT [Concomitant]
     Active Substance: DIMENHYDRINATE
     Indication: PRODUCT USED FOR UNKNOWN INDICATION
     Dosage: UNK
     Route: 048
     Dates: start: 20150909, end: 20150911

REACTIONS (5)
  - Chest discomfort [Not Recovered/Not Resolved]
  - Limb discomfort [Not Recovered/Not Resolved]
  - Feeling hot [Not Recovered/Not Resolved]
  - Body temperature increased [Not Recovered/Not Resolved]
  - Dyspnoea [Not Recovered/Not Resolved]

NARRATIVE: CASE EVENT DATE: 20150909
